FAERS Safety Report 19009082 (Version 2)
Quarter: 2021Q1

REPORT INFORMATION
  Report Type: Spontaneous
  Country: MY (occurrence: MY)
  Receive Date: 20210316
  Receipt Date: 20210331
  Transmission Date: 20210420
  Serious: Yes (Death)
  Sender: FDA-Public Use
  Company Number: MY-ROCHE-2787788

PATIENT
  Age: 73 Year
  Sex: Female
  Weight: 37 kg

DRUGS (1)
  1. TECENTRIQ [Suspect]
     Active Substance: ATEZOLIZUMAB
     Indication: NON-SMALL CELL LUNG CANCER METASTATIC
     Dosage: ON 24/SEP/2018, 15/OCT/2018, 05/NOV/2018, 26/NOV/2018, 10/DEC/2018, 02/JAN/2021, 23/JAN/2021, 14/FEB
     Route: 065
     Dates: start: 201808

REACTIONS (2)
  - Off label use [Unknown]
  - Myocardial infarction [Fatal]
